FAERS Safety Report 5189819-X (Version None)
Quarter: 2006Q4

REPORT INFORMATION
  Report Type: 
  Country: None (occurrence: None)
  Receive Date: 20061218
  Receipt Date: 20061202
  Transmission Date: 20070319
  Serious: Yes (Death)
  Sender: FDA-Public Use
  Company Number: A-US2004-08232

PATIENT
  Age: 58 Year
  Sex: Female

DRUGS (17)
  1. TRACLEER [Suspect]
     Indication: PULMONARY HYPERTENSION
     Dosage: 62.5 MG, BID, ORAL; 31.25 MG, BID, ORAL; 93.75 MG, QD, ORAL
     Route: 048
     Dates: start: 20040630, end: 20040719
  2. TRACLEER [Suspect]
     Indication: PULMONARY HYPERTENSION
     Dosage: 62.5 MG, BID, ORAL; 31.25 MG, BID, ORAL; 93.75 MG, QD, ORAL
     Route: 048
     Dates: start: 20040720, end: 20040830
  3. TRACLEER [Suspect]
     Indication: PULMONARY HYPERTENSION
     Dosage: 62.5 MG, BID, ORAL; 31.25 MG, BID, ORAL; 93.75 MG, QD, ORAL
     Route: 048
     Dates: start: 20040831
  4. BEXTRA [Concomitant]
  5. PREDNISONE TAB [Concomitant]
  6. LASIX [Concomitant]
  7. COZAAR [Concomitant]
  8. PREVACID [Concomitant]
  9. SPIRONOLACTONE [Concomitant]
  10. KLOR-CON [Concomitant]
  11. EVISTA [Concomitant]
  12. BENTYL [Concomitant]
  13. ALLOPURINOL [Concomitant]
  14. DETROL [Concomitant]
  15. LOMOTIL [Concomitant]
  16. ESATENOLOL [Concomitant]
  17. OXYGEN (OXYGEN) [Concomitant]

REACTIONS (4)
  - AUTOIMMUNE HEPATITIS [None]
  - CONDITION AGGRAVATED [None]
  - PULMONARY HYPERTENSION [None]
  - RIGHT VENTRICULAR FAILURE [None]
